FAERS Safety Report 12449945 (Version 2)
Quarter: 2017Q2

REPORT INFORMATION
  Report Type: Spontaneous
  Country: US (occurrence: US)
  Receive Date: 20160609
  Receipt Date: 20170406
  Transmission Date: 20170830
  Serious: Yes (Other)
  Sender: FDA-Public Use
  Company Number: US-JNJFOC-20160600663

PATIENT
  Age: 5 Year
  Sex: Male

DRUGS (1)
  1. RISPERDAL [Suspect]
     Active Substance: RISPERIDONE
     Indication: AUTISM SPECTRUM DISORDER
     Dosage: 0.25 MG HALF TABLET ONCE A DAY FOR 4 DAYS AND THEN 1 TABLET AT BEDTIME.
     Route: 048
     Dates: start: 20050713, end: 200607

REACTIONS (2)
  - Gynaecomastia [Unknown]
  - Fatigue [Unknown]

NARRATIVE: CASE EVENT DATE: 200607
